FAERS Safety Report 17875415 (Version 2)
Quarter: 2020Q2

REPORT INFORMATION
  Report Type: Spontaneous
  Country: JP (occurrence: JP)
  Receive Date: 20200609
  Receipt Date: 20200619
  Transmission Date: 20200714
  Serious: Yes (Hospitalization)
  Sender: FDA-Public Use
  Company Number: JP-TEVA-2020-JP-1245225

PATIENT
  Age: 67 Year
  Sex: Male

DRUGS (3)
  1. BEVACIZUMAB. [Suspect]
     Active Substance: BEVACIZUMAB
     Indication: COLON CANCER METASTATIC
     Dosage: RECEIVED 11 COURSES
     Route: 065
     Dates: start: 201803
  2. CAPECITABINE. [Suspect]
     Active Substance: CAPECITABINE
     Indication: COLON CANCER METASTATIC
     Dosage: RECEIVED 11 COURSES
     Route: 065
     Dates: start: 201802
  3. OXALIPLATIN. [Suspect]
     Active Substance: OXALIPLATIN
     Indication: COLON CANCER METASTATIC
     Dosage: RECEIVED 11 COURSES
     Route: 065
     Dates: start: 201802

REACTIONS (6)
  - Oesophageal varices haemorrhage [Recovered/Resolved]
  - Oesophageal ulcer [Unknown]
  - Haematemesis [Recovered/Resolved]
  - Hepatic failure [Recovered/Resolved]
  - Shock [Recovered/Resolved]
  - Shock haemorrhagic [Recovered/Resolved]
